FAERS Safety Report 6480954-2 (Version None)
Quarter: 2009Q4

REPORT INFORMATION
  Report Type: 
  Country: None (occurrence: None)
  Receive Date: 20091208
  Receipt Date: 20091203
  Transmission Date: 20100525
  Serious: Yes (Life-Threatening, Hospitalization)
  Sender: FDA-Public Use
  Company Number: PHHY2009JP30909

PATIENT
  Sex: Male
  Weight: 60 kg

DRUGS (4)
  1. VOLTAREN [Suspect]
     Indication: POST HERPETIC NEURALGIA
     Dosage: 75 MG/DAY
     Route: 048
     Dates: start: 20090207, end: 20090221
  2. VOLTAREN [Suspect]
     Dosage: 25 MG, PRN
     Route: 048
     Dates: start: 20090207, end: 20090221
  3. TEGRETOL [Suspect]
     Indication: POST HERPETIC NEURALGIA
     Dosage: 1500 MG/DAY
     Route: 048
     Dates: start: 20080901, end: 20090221
  4. VOLTAREN-XR [Concomitant]
     Route: 048

REACTIONS (12)
  - ABDOMINAL PAIN UPPER [None]
  - C-REACTIVE PROTEIN INCREASED [None]
  - GASTRECTOMY [None]
  - GASTRIC ULCER HAEMORRHAGE [None]
  - GASTRIC ULCER PERFORATION [None]
  - HAEMATEMESIS [None]
  - LAPAROTOMY [None]
  - PAIN [None]
  - PERITONEAL DISORDER [None]
  - PLATELET COUNT INCREASED [None]
  - POST HERPETIC NEURALGIA [None]
  - WHITE BLOOD CELL COUNT INCREASED [None]
